FAERS Safety Report 16511564 (Version 1)
Quarter: 2019Q3

REPORT INFORMATION
  Report Type: Report from Study
  Country: SG (occurrence: SG)
  Receive Date: 20190702
  Receipt Date: 20190702
  Transmission Date: 20191004
  Serious: Yes (Other)
  Sender: FDA-Public Use
  Company Number: SG-ROCHE-2341990

PATIENT
  Sex: Female

DRUGS (3)
  1. PERJETA [Suspect]
     Active Substance: PERTUZUMAB
     Indication: PRODUCT USED FOR UNKNOWN INDICATION
     Route: 065
  2. HERCEPTIN [Suspect]
     Active Substance: TRASTUZUMAB
     Indication: PRODUCT USED FOR UNKNOWN INDICATION
     Route: 065
  3. PANADOL [Concomitant]
     Active Substance: ACETAMINOPHEN

REACTIONS (10)
  - Malaise [Unknown]
  - Diarrhoea [Unknown]
  - Feeling cold [Unknown]
  - Headache [Unknown]
  - Hypertension [Unknown]
  - Nervousness [Unknown]
  - Constipation [Unknown]
  - Asthenia [Unknown]
  - Ill-defined disorder [Unknown]
  - Myalgia [Unknown]
